FAERS Safety Report 4816720-0 (Version None)
Quarter: 2005Q4

REPORT INFORMATION
  Report Type: 
  Country: None (occurrence: None)
  Receive Date: 20051028
  Receipt Date: 20041014
  Transmission Date: 20060501
  Serious: Yes (Hospitalization, Other)
  Sender: FDA-Public Use
  Company Number: 203805

PATIENT
  Age: 44 Year
  Sex: Female
  Weight: 74.8435 kg

DRUGS (3)
  1. AVONEX [Suspect]
     Indication: MULTIPLE SCLEROSIS
     Dosage: 30 UG QW IM
     Route: 030
     Dates: start: 19981201, end: 20040101
  2. AVONEX [Suspect]
     Indication: MULTIPLE SCLEROSIS
     Dosage: 30 UG QW IM
     Route: 030
     Dates: start: 20040101
  3. OXYBUTYNIN [Concomitant]

REACTIONS (11)
  - ARTHRALGIA [None]
  - BASEDOW'S DISEASE [None]
  - COGNITIVE DISORDER [None]
  - DEPRESSION [None]
  - DISEASE PROGRESSION [None]
  - HYPOTHYROIDISM [None]
  - MULTIPLE SCLEROSIS [None]
  - PAIN [None]
  - PYREXIA [None]
  - SJOGREN'S SYNDROME [None]
  - THERMAL BURN [None]
